FAERS Safety Report 25744497 (Version 1)
Quarter: 2025Q3

REPORT INFORMATION
  Report Type: Spontaneous
  Country: US (occurrence: US)
  Receive Date: 20250901
  Receipt Date: 20250901
  Transmission Date: 20251021
  Serious: No
  Sender: EMD SERONO INC
  Company Number: US-Merck Healthcare KGaA-2025042461

PATIENT
  Sex: Female

DRUGS (1)
  1. MAVENCLAD [Suspect]
     Active Substance: CLADRIBINE
     Indication: Multiple sclerosis

REACTIONS (12)
  - Swelling [Unknown]
  - Bladder dysfunction [Unknown]
  - Functional gastrointestinal disorder [Unknown]
  - Gait disturbance [Unknown]
  - Memory impairment [Unknown]
  - Hypoaesthesia [Unknown]
  - Sleep disorder [Unknown]
  - Speech disorder [Unknown]
  - Muscle spasticity [Unknown]
  - Visual impairment [Unknown]
  - Paraesthesia [Unknown]
  - Vertigo [Unknown]
